FAERS Safety Report 4412247-9 (Version None)
Quarter: 2004Q3

REPORT INFORMATION
  Report Type: 
  Country: None (occurrence: None)
  Receive Date: 20040727
  Receipt Date: 20040712
  Transmission Date: 20050211
  Serious: Yes (Hospitalization)
  Sender: FDA-Public Use
  Company Number: 154698

PATIENT
  Age: 62 Year
  Sex: Male
  Weight: 106.5953 kg

DRUGS (9)
  1. AVONEX [Suspect]
     Indication: MULTIPLE SCLEROSIS
     Dosage: 30 MCG QW IM
     Route: 030
     Dates: start: 20001007
  2. MONOPRIL [Concomitant]
  3. CARDIZEM [Concomitant]
  4. ASPIRIN [Concomitant]
  5. LIPITOR [Concomitant]
  6. PEPCID [Concomitant]
  7. TEGRETOL [Concomitant]
  8. FLOMAX ^CHIEST^ [Concomitant]
  9. MULTI-VITAMINS [Concomitant]

REACTIONS (7)
  - ALBUMIN GLOBULIN RATIO INCREASED [None]
  - CONDITION AGGRAVATED [None]
  - CONSTIPATION [None]
  - GASTROINTESTINAL DISORDER [None]
  - PANCREATIC ENLARGEMENT [None]
  - PANCREATITIS ACUTE [None]
  - RENAL DISORDER [None]
